FAERS Safety Report 21520887 (Version 1)
Quarter: 2022Q4

REPORT INFORMATION
  Report Type: Report from Study
  Country: US (occurrence: US)
  Receive Date: 20221028
  Receipt Date: 20221028
  Transmission Date: 20230113
  Serious: No
  Sender: FDA-Public Use
  Company Number: US-NOVARTISTESTPH-NVSC2022US236765

PATIENT
  Sex: Female

DRUGS (2)
  1. SCEMBLIX [Suspect]
     Active Substance: ASCIMINIB HYDROCHLORIDE
     Indication: Chronic myeloid leukaemia
     Dosage: 80 MG, QD
     Route: 065
  2. SCEMBLIX [Suspect]
     Active Substance: ASCIMINIB HYDROCHLORIDE
     Dosage: 40 MG, QD
     Route: 065

REACTIONS (8)
  - Skin disorder [Unknown]
  - Skin burning sensation [Unknown]
  - Skin exfoliation [Unknown]
  - Herpes virus infection [Unknown]
  - Anxiety [Unknown]
  - Hypertension [Unknown]
  - Rash [Unknown]
  - Pruritus [Unknown]
